FAERS Safety Report 7291820-7 (Version None)
Quarter: 2011Q1

REPORT INFORMATION
  Report Type: 
  Country: None (occurrence: None)
  Receive Date: 20110214
  Receipt Date: 20110207
  Transmission Date: 20110831
  Serious: Yes (Hospitalization)
  Sender: FDA-Public Use
  Company Number: US-SANOFI-AVENTIS-2011SA008499

PATIENT
  Age: 50 Year
  Sex: Male
  Weight: 127.91 kg

DRUGS (5)
  1. LANTUS [Suspect]
     Indication: TYPE 2 DIABETES MELLITUS
     Dosage: 30 UNITS EVERY MORNING AND 15 UNITS EVERY EVENING
     Route: 058
  2. HUMALOG [Concomitant]
  3. LANTUS [Suspect]
     Dosage: 30 UNITS EVERY MORNING AND 15 UNITS EVERY EVENING
     Route: 058
  4. SOLOSTAR [Suspect]
     Indication: TYPE 2 DIABETES MELLITUS
  5. SOLOSTAR [Suspect]

REACTIONS (3)
  - BLOOD GLUCOSE INCREASED [None]
  - GASTRIC BANDING [None]
  - WEIGHT DECREASED [None]
